FAERS Safety Report 5837219-9 (Version None)
Quarter: 2008Q3

REPORT INFORMATION
  Report Type: 
  Country: None (occurrence: None)
  Receive Date: 20080807
  Receipt Date: 20080725
  Transmission Date: 20090109
  Serious: Yes (Hospitalization)
  Sender: FDA-Public Use
  Company Number: GB-GENENTECH-254006

PATIENT
  Sex: Female
  Weight: 70 kg

DRUGS (8)
  1. AVASTIN [Suspect]
     Indication: BREAST CANCER
     Dosage: 740 MG, 2/WEEK
     Route: 042
     Dates: start: 20071005, end: 20071218
  2. VINORELBINE [Concomitant]
     Indication: BREAST CANCER
     Dates: start: 20071004
  3. NEULASTA [Concomitant]
     Indication: NEUTROPENIA
     Dates: start: 20071005
  4. DOMPERIDONE [Concomitant]
     Indication: NAUSEA
     Dates: start: 20071004
  5. DOMPERIDONE [Concomitant]
     Indication: VOMITING
  6. LORAZEPAM [Concomitant]
     Indication: NAUSEA
     Dosage: UNK, UNK
     Dates: start: 20071004
  7. LORAZEPAM [Concomitant]
     Indication: VOMITING
  8. PRE-MEDICATIONS (UNK INGREDIENTS) [Concomitant]
     Indication: PREMEDICATION

REACTIONS (9)
  - DIARRHOEA [None]
  - DYSPNOEA [None]
  - EPIGASTRIC DISCOMFORT [None]
  - FAECES DISCOLOURED [None]
  - FATIGUE [None]
  - GASTROINTESTINAL HAEMORRHAGE [None]
  - MELAENA [None]
  - NEUTROPENIA [None]
  - RETCHING [None]
